FAERS Safety Report 5441457-7 (Version None)
Quarter: 2007Q3

REPORT INFORMATION
  Report Type: 
  Country: None (occurrence: None)
  Receive Date: 20070828
  Receipt Date: 20070813
  Transmission Date: 20080115
  Serious: Yes (Hospitalization, Other)
  Sender: FDA-Public Use
  Company Number: 2007US-09344

PATIENT
  Age: 73 Year
  Sex: Male

DRUGS (5)
  1. ISOPTIN SR [Suspect]
     Indication: DRUG USE FOR UNKNOWN INDICATION
     Dosage: 240 MG, SINGLE, ORAL
     Route: 048
  2. PROPANOLOL 60MG [Suspect]
     Indication: DRUG USE FOR UNKNOWN INDICATION
     Dosage: 120 MG, QD
  3. TEMPORARY TRANSVENOUS PACEMAKER [Suspect]
     Indication: DRUG USE FOR UNKNOWN INDICATION
  4. GLYBURIDE [Concomitant]
  5. LISINOPRIL [Concomitant]

REACTIONS (12)
  - ATRIOVENTRICULAR BLOCK [None]
  - BRADYCARDIA [None]
  - CARDIOMEGALY [None]
  - CEREBRAL HYPOPERFUSION [None]
  - CHEST PAIN [None]
  - CONFUSIONAL STATE [None]
  - DRUG TOXICITY [None]
  - DYSPNOEA [None]
  - HYPOTENSION [None]
  - LETHARGY [None]
  - PRESYNCOPE [None]
  - RALES [None]
